FAERS Safety Report 8847062 (Version 2)
Quarter: 2012Q4

REPORT INFORMATION
  Report Type: 
  Country: US (occurrence: US)
  Receive Date: 20121018
  Receipt Date: 20121114
  Transmission Date: 20130627
  Serious: Yes (Death)
  Sender: FDA-Public Use
  Company Number: US-TEVA-364746USA

PATIENT
  Sex: Female

DRUGS (9)
  1. FENTORA [Suspect]
     Dosage: 300 Microgram Daily; alternated
     Route: 002
  2. FENTORA [Suspect]
     Dosage: 600 Milligram Daily; alternated
     Route: 002
  3. CYMBALTA [Concomitant]
  4. DURAGESIC [Concomitant]
     Route: 062
  5. GABAPENTIN [Concomitant]
  6. HYDROXYZINE [Concomitant]
  7. METOPROLOL [Concomitant]
  8. SPIRONOLACTONE [Concomitant]
  9. TIZANIDINE [Concomitant]

REACTIONS (1)
  - Death [Fatal]
